FAERS Safety Report 5337024-6 (Version None)
Quarter: 2007Q2

REPORT INFORMATION
  Report Type: 
  Country: None (occurrence: None)
  Receive Date: 20070529
  Receipt Date: 20070522
  Transmission Date: 20071010
  Serious: Yes (Death, Hospitalization)
  Sender: FDA-Public Use
  Company Number: JP-SANOFI-SYNTHELABO-D01200702013

PATIENT
  Sex: Male
  Weight: 68 kg

DRUGS (3)
  1. ZINC OXIDE OINTMENT [Concomitant]
     Indication: ECZEMA
     Dosage: APPROPRIATE AMOUNT
     Route: 065
  2. DIFLUPREDNATE [Concomitant]
     Indication: ECZEMA
     Dosage: APPROPRIATE AMOUNT
     Route: 065
  3. ALFUZOSIN [Suspect]
     Indication: BENIGN PROSTATIC HYPERPLASIA
     Route: 048
     Dates: start: 20060704, end: 20070318

REACTIONS (1)
  - COLON CANCER METASTATIC [None]
